FAERS Safety Report 8791584 (Version 1)
Quarter: 2012Q4

REPORT INFORMATION
  Report Type: Spontaneous
  Country: US (occurrence: None)
  Receive Date: 20120913
  Receipt Date: 20120913
  Transmission Date: 20130627
  Serious: Yes (Other)
  Sender: FDA-Public Use
  Company Number: 2011029320

PATIENT
  Age: 7 Year
  Sex: Male
  Weight: 32.66 kg

DRUGS (7)
  1. HIZENTRA [Suspect]
     Indication: IMMUNODEFICIENCY
     Dosage: 25 ml 1x/week, in 2 sites over 1 hour subcutaneous
     Route: 058
     Dates: start: 20110715
  2. HIZENTRA [Suspect]
     Indication: PRIMARY IMMUNODEFICIENCY SYNDROME
     Dosage: 25 ml 1x/week, in 2 sites over 1 hour subcutaneous
     Route: 058
     Dates: start: 20110715
  3. HIZENTRA [Suspect]
     Indication: IMMUNODEFICIENCY
     Dosage: 2 to 3 weekly doses, Subcutaneous
     Route: 058
     Dates: start: 20120828
  4. HIZENTRA [Suspect]
     Indication: PRIMARY IMMUNODEFICIENCY SYNDROME
     Dosage: 2 to 3 weekly doses, Subcutaneous
     Route: 058
     Dates: start: 20120828
  5. ADVAIR (SERETIDE) [Concomitant]
  6. NASONEX (MOMETASONE FUROATE) [Concomitant]
  7. AMOXICILLIN [Concomitant]

REACTIONS (5)
  - Muscle twitching [None]
  - Neck pain [None]
  - Antinuclear antibody positive [None]
  - Arthralgia [None]
  - Muscle twitching [None]
